FAERS Safety Report 8406009-5 (Version None)
Quarter: 2012Q2

REPORT INFORMATION
  Report Type: 
  Country: None (occurrence: None)
  Receive Date: 20120529
  Receipt Date: 20080102
  Transmission Date: 20120825
  Serious: Yes (Hospitalization, Disabling)
  Sender: FDA-Public Use
  Company Number: 02100-EUR-07-0186

PATIENT
  Age: 56 Year
  Sex: Female

DRUGS (7)
  1. PROCORALAN [Concomitant]
  2. VALORON N (NALOXONE HYDROPCHLORIDE, TILIDINE HYDROCHLORIDE) [Concomitant]
  3. PLETAL [Suspect]
     Indication: INTERMITTENT CLAUDICATION
     Dosage: 100 MG, BID, ORAL
     Route: 048
     Dates: start: 20070310
  4. ASPIRIN [Concomitant]
  5. PENTARITHRITYL TETRANITRATE (PWNTAERITHRITYL TETRANITRATE) [Concomitant]
  6. PRETERAX (INDAPAMIDE, PERINDOPRIL ERBUMINE) [Concomitant]
  7. PANTOPRAZOLE [Concomitant]

REACTIONS (3)
  - PERONEAL NERVE INJURY [None]
  - VASCULAR GRAFT OCCLUSION [None]
  - COMPARTMENT SYNDROME [None]
